FAERS Safety Report 9131023 (Version 1)
Quarter: 2013Q1

REPORT INFORMATION
  Report Type: Report from Study
  Country: DE (occurrence: DE)
  Receive Date: 20130301
  Receipt Date: 20130301
  Transmission Date: 20140127
  Serious: Yes (Hospitalization)
  Sender: FDA-Public Use
  Company Number: DE-BRISTOL-MYERS SQUIBB COMPANY-16677593

PATIENT
  Age: 78 Year
  Sex: Male

DRUGS (15)
  1. APIXABAN [Suspect]
     Indication: THROMBOSIS PROPHYLAXIS
     Dosage: ONCE IN MRNG ONCE IN EVNG; INTERRUPTED 06-JUN-2012,RESTARTED ON 07JUL12
     Route: 048
     Dates: start: 20111028, end: 20120606
  2. CLEXANE [Suspect]
     Route: 051
  3. SPIRIVA [Concomitant]
     Dosage: CAPS
  4. BERODUAL [Concomitant]
     Dosage: RESPIMAT SOLN
     Route: 055
  5. HYDROCHLOROTHIAZIDE [Concomitant]
     Dosage: MORNING
  6. DOXAZOSIN [Concomitant]
     Dosage: 1DF=20UNITS?TABS
  7. VIANI [Concomitant]
     Dosage: ONCE IN MRNG ONCE IN EVNG?1DF=50UG/250UG?POWDER
     Route: 055
  8. BRONCHORETARD [Concomitant]
     Dosage: ONCE IN MRNG ONCE IN EVNG?1DF=20UNITS, 350 NOS
  9. TORASEMIDE [Concomitant]
     Dosage: 30UNITS?TABS?ONCE IN MRNG ONCE IN NOON
  10. ATROVENT [Concomitant]
     Dosage: ONCE IN MRNG ONCE IN EVNG ONCE IN NOON?1DF=250UG/2ML
     Route: 055
  11. PREDNISOLONE [Concomitant]
     Dosage: IN THE NOON?100 UNITS
  12. PANTOPRAZOLE [Concomitant]
     Dosage: 14 UNITS, ENTERIC COATED TABLET
  13. EINSALPHA [Concomitant]
     Dosage: 30UNITS
  14. KALINOR [Concomitant]
     Dosage: 1DF=15UNITS?EFFERVESCENT TABS
  15. BRONCHICUM [Concomitant]
     Dosage: ELIXIR LIQ 100ML

REACTIONS (1)
  - Haemoptysis [Recovered/Resolved]
